FAERS Safety Report 9981153 (Version 3)
Quarter: 2014Q2

REPORT INFORMATION
  Report Type: Spontaneous
  Country: GB (occurrence: None)
  Receive Date: 20140305
  Receipt Date: 20140528
  Transmission Date: 20141212
  Serious: Yes (Hospitalization)
  Sender: FDA-Public Use
  Company Number: AUR-APL-2014-02222

PATIENT
  Age: 59 Year
  Sex: Female
  Weight: 77.2 kg

DRUGS (3)
  1. MIRTAZAPINE [Suspect]
     Indication: PRODUCT USED FOR UNKNOWN INDICATION
     Dosage: 30 MG, 1 IN 1 D, ORAL
     Route: 048
     Dates: end: 201311
  2. LANSOPRAZOLE [Suspect]
     Indication: PRODUCT USED FOR UNKNOWN INDICATION
     Dosage: 15 MG, 1 IN 1 D, ORAL
     Route: 048
  3. BACLOFEN [Suspect]
     Indication: PRODUCT USED FOR UNKNOWN INDICATION
     Dosage: 20 MG (5 MG,4 IN 1 D), ORAL
     Route: 048

REACTIONS (6)
  - Liver function test abnormal [None]
  - White blood cell count abnormal [None]
  - Infection [None]
  - Gamma-glutamyltransferase increased [None]
  - Alanine aminotransferase increased [None]
  - Blood alkaline phosphatase increased [None]
